FAERS Safety Report 8444785-6 (Version None)
Quarter: 2012Q2

REPORT INFORMATION
  Report Type: 
  Country: None (occurrence: None)
  Receive Date: 20120612
  Receipt Date: 20120612
  Transmission Date: 20120825
  Serious: No
  Sender: FDA-Public Use
  Company Number: None

PATIENT
  Age: 59 Year
  Sex: Female
  Weight: 61.6892 kg

DRUGS (3)
  1. THERA TEAR LUBRICANT [Concomitant]
  2. RESTASIS [Suspect]
     Indication: DRY EYE
     Dosage: 1 DROP 2 TIMES A DAY OPTHALMIC
     Route: 047
     Dates: start: 20120404, end: 20120508
  3. RESTASIS [Suspect]
     Indication: DRY EYE
     Dosage: 1 DROP 2 TIMES A DAY OPTHALMIC
     Route: 047
     Dates: start: 20120531, end: 20120602

REACTIONS (4)
  - EYELID OEDEMA [None]
  - DRUG HYPERSENSITIVITY [None]
  - OCULAR HYPERAEMIA [None]
  - EYE SWELLING [None]
